FAERS Safety Report 7571554-1 (Version None)
Quarter: 2011Q2

REPORT INFORMATION
  Report Type: 
  Country: None (occurrence: None)
  Receive Date: 20110624
  Receipt Date: 20110620
  Transmission Date: 20111010
  Serious: Yes (Life-Threatening, Hospitalization, Other)
  Sender: FDA-Public Use
  Company Number: US-SANOFI-AVENTIS-2011SA038925

PATIENT
  Age: 72 Year

DRUGS (4)
  1. BEVACIZUMAB [Suspect]
     Indication: COLORECTAL CANCER
     Dosage: DURATION: 30 - 90 MINS
     Route: 042
     Dates: start: 20100517, end: 20100517
  2. OXALIPLATIN [Suspect]
     Indication: COLORECTAL CANCER
     Route: 042
     Dates: start: 20100517, end: 20100517
  3. LEUCOVORIN CALCIUM [Suspect]
     Indication: COLORECTAL CANCER
     Route: 042
     Dates: start: 20100517, end: 20100517
  4. FLUOROURACIL [Suspect]
     Indication: COLORECTAL CANCER
     Dosage: DOSE:2.4 GRAM(S)/SQUARE METER
     Route: 042
     Dates: start: 20100517, end: 20100517

REACTIONS (6)
  - HYPOTENSION [None]
  - CYSTITIS [None]
  - DIARRHOEA [None]
  - SYNCOPE [None]
  - HYPERURICAEMIA [None]
  - BLOOD CREATININE INCREASED [None]
